FAERS Safety Report 15133207 (Version 1)
Quarter: 2018Q3

REPORT INFORMATION
  Report Type: Spontaneous
  Country: FR (occurrence: FR)
  Receive Date: 20180712
  Receipt Date: 20180712
  Transmission Date: 20181010
  Serious: Yes (Hospitalization)
  Sender: FDA-Public Use
  Company Number: FR-TEVA-2018-FR-924518

PATIENT
  Age: 73 Year
  Sex: Male
  Weight: 86 kg

DRUGS (15)
  1. LANSOPRAZOLE. [Suspect]
     Active Substance: LANSOPRAZOLE
     Indication: GASTRITIS EROSIVE
     Dosage: 30 MILLIGRAM DAILY;
     Route: 048
     Dates: start: 20180131, end: 20180330
  2. GENTAMICINE [Concomitant]
     Active Substance: GENTAMICIN
     Route: 042
     Dates: start: 20180312, end: 20180316
  3. PREVISCAN 20 MG, COMPRIM? S?CABLE [Concomitant]
     Active Substance: FLUINDIONE
     Dosage: 1 DOSAGE FORMS DAILY;
     Route: 048
  4. ROCEPHINE [Concomitant]
     Active Substance: CEFTRIAXONE SODIUM
     Dosage: 2 GRAM DAILY;
     Route: 042
     Dates: start: 20180301, end: 20180311
  5. KARDEGIC [Concomitant]
     Active Substance: ASPIRIN DL-LYSINE
     Dosage: 1 DOSAGE FORMS DAILY;
     Route: 048
     Dates: end: 201802
  6. SOTALOL (CHLORHYDRATE DE) [Concomitant]
     Active Substance: SOTALOL
     Dosage: 80 MILLIGRAM DAILY;
     Route: 048
  7. SORIATANE [Concomitant]
     Active Substance: ACITRETIN
     Route: 048
  8. PANTOPRAZOLE [Concomitant]
     Active Substance: PANTOPRAZOLE
     Indication: GASTRITIS EROSIVE
     Route: 048
     Dates: start: 2015, end: 20180130
  9. AMOXICILLINE SODIQUE [Concomitant]
     Active Substance: AMOXICILLIN
     Dosage: 12 GRAM DAILY;
     Route: 042
     Dates: start: 20180201, end: 20180228
  10. CANDESARTAN CILEXETIL. [Concomitant]
     Active Substance: CANDESARTAN CILEXETIL
     Dosage: 8 MILLIGRAM DAILY;
     Route: 048
     Dates: end: 201802
  11. LERCAN 10 MG, COMPRIM? PELLICUL? S?CABLE [Concomitant]
     Active Substance: LERCANIDIPINE HYDROCHLORIDE
     Dosage: 1 DOSAGE FORMS DAILY;
     Route: 048
     Dates: end: 201802
  12. RAMIPRIL. [Concomitant]
     Active Substance: RAMIPRIL
     Dosage: 2.5 MILLIGRAM DAILY;
     Route: 048
     Dates: start: 201802
  13. ZYLORIC 200 MG, COMPRIM? [Concomitant]
     Active Substance: ALLOPURINOL
     Dosage: 1 DOSAGE FORMS DAILY;
     Route: 048
  14. CUBICIN [Concomitant]
     Active Substance: DAPTOMYCIN
     Route: 042
     Dates: start: 20180316, end: 20180329
  15. ESIDREX [Concomitant]
     Active Substance: HYDROCHLOROTHIAZIDE
     Dosage: 1 DOSAGE FORMS DAILY;
     Route: 048

REACTIONS (1)
  - Colitis microscopic [Recovered/Resolved]

NARRATIVE: CASE EVENT DATE: 20180312
